FAERS Safety Report 18510777 (Version 1)
Quarter: 2020Q4

REPORT INFORMATION
  Report Type: Spontaneous
  Country: US (occurrence: US)
  Receive Date: 20201116
  Receipt Date: 20201116
  Transmission Date: 20210114
  Serious: Yes (Other)
  Sender: FDA-Public Use
  Company Number: None

PATIENT
  Age: 54 Year
  Sex: Male

DRUGS (9)
  1. FARXIGA 10MG TABLET [Concomitant]
  2. METOPROLOL SUCCINATE 100MG ER TABLET [Concomitant]
  3. CLONIDINE 0.3MG TABLET [Concomitant]
  4. METFORMIN 1000MG TABLET [Concomitant]
  5. PANTOPRAZOLE 40MG DR TABLET [Concomitant]
  6. OZEMPIC [Suspect]
     Active Substance: SEMAGLUTIDE
     Indication: TYPE 2 DIABETES MELLITUS
     Dosage: ?          OTHER FREQUENCY:ONCE WEEKLY;?
     Route: 058
     Dates: start: 20200702
  7. ATORVASTATIN 10MG TABLET [Concomitant]
     Active Substance: ATORVASTATIN
  8. CLOPIDOGREL 75MG TABLET [Concomitant]
  9. TELMISARTAN 80MG TABLET [Concomitant]

REACTIONS (3)
  - Abdominal pain upper [None]
  - Diarrhoea [None]
  - Abdominal discomfort [None]

NARRATIVE: CASE EVENT DATE: 20201020
